FAERS Safety Report 24109856 (Version 2)
Quarter: 2024Q3

REPORT INFORMATION
  Report Type: Spontaneous
  Country: GB (occurrence: GB)
  Receive Date: 20240718
  Receipt Date: 20240727
  Transmission Date: 20241017
  Serious: Yes (Death, Hospitalization, Other)
  Sender: TEVA
  Company Number: IE-002147023-NVSC2020GB371133

PATIENT
  Age: 74 Year
  Sex: Male

DRUGS (291)
  1. DEXAMETHASONE [Suspect]
     Active Substance: DEXAMETHASONE
     Indication: Plasma cell myeloma
     Dosage: UNK
     Route: 048
     Dates: start: 20181210
  2. DEXAMETHASONE [Suspect]
     Active Substance: DEXAMETHASONE
     Indication: Plasma cell myeloma
     Dosage: 20 MG, QW, DURATION : 21 DAYS
     Route: 048
     Dates: start: 20180917, end: 20181007
  3. DEXAMETHASONE [Suspect]
     Active Substance: DEXAMETHASONE
     Indication: Plasma cell myeloma
     Dosage: 20 MG, QW
     Route: 048
     Dates: start: 20190123
  4. DEXAMETHASONE [Suspect]
     Active Substance: DEXAMETHASONE
     Indication: Plasma cell myeloma
     Dosage: 20 MG, QW, DURATION : 22 DAYS
     Route: 048
     Dates: start: 20181211, end: 20190101
  5. DEXAMETHASONE [Suspect]
     Active Substance: DEXAMETHASONE
     Indication: Plasma cell myeloma
     Dosage: 20 MG, QW, DURATION : 5 DAYS
     Route: 048
     Dates: start: 20191006, end: 20191010
  6. DEXAMETHASONE [Suspect]
     Active Substance: DEXAMETHASONE
     Indication: Plasma cell myeloma
     Dosage: UNK (SOLUBLE TABLET)
     Route: 048
     Dates: start: 20181015
  7. DEXAMETHASONE [Suspect]
     Active Substance: DEXAMETHASONE
     Indication: Plasma cell myeloma
     Dosage: 20 MG, QW (SOLUBLE TABLET), DURATION : 35 DAYS
     Route: 048
     Dates: start: 20190906, end: 20191010
  8. DEXAMETHASONE [Suspect]
     Active Substance: DEXAMETHASONE
     Indication: Plasma cell myeloma
     Dosage: 20 MG, QW (SOLUBLE TABLET), DURATION : 21 DAYS
     Route: 048
     Dates: start: 20181113, end: 20181203
  9. DEXAMETHASONE [Suspect]
     Active Substance: DEXAMETHASONE
     Indication: Plasma cell myeloma
     Dosage: 20 MG, QW (SOLUBLE TABLET), DURATION : 78 DAYS
     Route: 048
     Dates: start: 20190614, end: 20190830
  10. DEXAMETHASONE [Suspect]
     Active Substance: DEXAMETHASONE
     Indication: Plasma cell myeloma
     Dosage: 20 MG, QW
     Route: 048
     Dates: start: 20190906, end: 20191228
  11. DEXAMETHASONE [Suspect]
     Active Substance: DEXAMETHASONE
     Indication: Plasma cell myeloma
     Dosage: 20 MG, QW, DURATION : 16 DAYS
     Route: 048
     Dates: start: 20191213, end: 20191228
  12. DEXAMETHASONE [Suspect]
     Active Substance: DEXAMETHASONE
     Indication: Plasma cell myeloma
     Dosage: 20 MG, QW, DURATION : 134 DAYS
     Route: 048
     Dates: start: 20180821, end: 20190101
  13. DEXAMETHASONE [Suspect]
     Active Substance: DEXAMETHASONE
     Indication: Plasma cell myeloma
     Dosage: 20 MG, QW (SOLUBLE TABLET), DURATION :21 DAYS
     Route: 048
     Dates: start: 20181016, end: 20181105
  14. DEXAMETHASONE [Suspect]
     Active Substance: DEXAMETHASONE
     Indication: Plasma cell myeloma
     Dosage: UNK
     Route: 048
     Dates: start: 20181112
  15. DEXAMETHASONE [Suspect]
     Active Substance: DEXAMETHASONE
     Indication: Plasma cell myeloma
     Dosage: 20 MG, QW (SOLUBLE TABLET)
     Route: 048
     Dates: start: 20191228
  16. DEXAMETHASONE [Suspect]
     Active Substance: DEXAMETHASONE
     Indication: Plasma cell myeloma
     Dosage: 20 MG, QW
     Route: 048
     Dates: start: 20190614, end: 20190830
  17. DEXAMETHASONE [Suspect]
     Active Substance: DEXAMETHASONE
     Indication: Plasma cell myeloma
     Dosage: UNK
     Route: 048
     Dates: start: 20181210
  18. DEXAMETHASONE [Suspect]
     Active Substance: DEXAMETHASONE
     Indication: Plasma cell myeloma
     Dosage: 20 MG
     Route: 048
     Dates: start: 20190123
  19. DEXAMETHASONE [Suspect]
     Active Substance: DEXAMETHASONE
     Indication: Plasma cell myeloma
     Dosage: UNK
     Route: 048
     Dates: start: 20190809
  20. DEXAMETHASONE [Suspect]
     Active Substance: DEXAMETHASONE
     Indication: Plasma cell myeloma
     Dosage: UNK
     Route: 048
     Dates: start: 20181112
  21. DEXAMETHASONE [Suspect]
     Active Substance: DEXAMETHASONE
     Indication: Plasma cell myeloma
     Dosage: 20 MG, QW (SOLUBLE TABLET)
     Route: 048
     Dates: start: 20181113, end: 20181203
  22. DEXAMETHASONE [Suspect]
     Active Substance: DEXAMETHASONE
     Indication: Plasma cell myeloma
     Dosage: UNK (SOLUBLE TABLET)
     Route: 048
  23. DEXAMETHASONE [Suspect]
     Active Substance: DEXAMETHASONE
     Indication: Plasma cell myeloma
     Dosage: UNK
     Route: 048
  24. DEXAMETHASONE [Suspect]
     Active Substance: DEXAMETHASONE
     Indication: Plasma cell myeloma
     Dosage: UNK
     Route: 048
     Dates: start: 20181010
  25. DEXAMETHASONE [Suspect]
     Active Substance: DEXAMETHASONE
     Indication: Plasma cell myeloma
     Dosage: 20 MG, QW (SOLUBLE TABLET)
     Route: 048
     Dates: start: 20180821, end: 20190101
  26. DEXAMETHASONE [Suspect]
     Active Substance: DEXAMETHASONE
     Indication: Plasma cell myeloma
     Dosage: 20 MG, QW (SOLUBLE TABLET)
     Route: 048
     Dates: start: 20181113, end: 20181203
  27. CLARITHROMYCIN [Concomitant]
     Active Substance: CLARITHROMYCIN
     Indication: Product used for unknown indication
     Dosage: 500 MG, DURATION: 4 DAYS
     Route: 048
     Dates: start: 20190106, end: 20190109
  28. PANTOPRAZOLE [Concomitant]
     Active Substance: PANTOPRAZOLE
     Indication: Prophylaxis
     Dosage: 80 MG, QD (40 MG, BID (80 MG
     Route: 048
     Dates: start: 20191016
  29. PANTOPRAZOLE [Concomitant]
     Active Substance: PANTOPRAZOLE
     Indication: Prophylaxis
     Dosage: 80 MG, QD
     Route: 048
     Dates: start: 20191016
  30. PANTOPRAZOLE [Concomitant]
     Active Substance: PANTOPRAZOLE
     Indication: Prophylaxis
     Dosage: UNK UNK, QD
     Route: 048
     Dates: start: 20191020
  31. PANTOPRAZOLE [Concomitant]
     Active Substance: PANTOPRAZOLE
     Indication: Prophylaxis
     Dosage: 20 MG, QD, DURATION: 1 DAY
     Route: 048
     Dates: start: 20190102, end: 20190102
  32. PANTOPRAZOLE [Concomitant]
     Active Substance: PANTOPRAZOLE
     Indication: Prophylaxis
     Dosage: 20 MG, DURATION: 5 MONTHS
     Route: 048
     Dates: start: 20180803, end: 20190102
  33. PANTOPRAZOLE [Concomitant]
     Active Substance: PANTOPRAZOLE
     Indication: Prophylaxis
     Dosage: 20 MG, QD, DURATION: 287 DAYS
     Route: 048
     Dates: start: 20190102, end: 20191015
  34. ENOXAPARIN SODIUM [Concomitant]
     Active Substance: ENOXAPARIN SODIUM
     Indication: Product used for unknown indication
     Dosage: 40 MG, QD, DURATION : 7 DAYS
     Dates: start: 20190103, end: 20190109
  35. MAGNESIUM OXIDE [Concomitant]
     Active Substance: MAGNESIUM OXIDE
     Indication: Malnutrition
     Dosage: UNK, QD
     Route: 048
  36. MAGNESIUM OXIDE [Concomitant]
     Active Substance: MAGNESIUM OXIDE
     Indication: Malnutrition
     Dosage: UNK, QD
     Route: 048
  37. MAGNESIUM OXIDE [Concomitant]
     Active Substance: MAGNESIUM OXIDE
     Indication: Malnutrition
     Dosage: UNK, QD, DURATION: 282 DAYS
     Route: 048
     Dates: start: 20190103, end: 20191011
  38. MAGNESIUM OXIDE [Concomitant]
     Active Substance: MAGNESIUM OXIDE
     Indication: Malnutrition
     Dosage: UNK, QD
     Route: 048
  39. MAGNESIUM OXIDE [Concomitant]
     Active Substance: MAGNESIUM OXIDE
     Indication: Malnutrition
     Dosage: UNK, QD, DURATION: 282 DAYS
     Route: 048
     Dates: start: 20190103, end: 20191011
  40. SODIUM FLUORIDE [Concomitant]
     Active Substance: SODIUM FLUORIDE\SODIUM MONOFLUOROPHOSPHATE
     Indication: Malnutrition
     Dosage: 90 ML, QD
     Route: 048
     Dates: start: 20190103
  41. SODIUM FLUORIDE [Concomitant]
     Active Substance: SODIUM FLUORIDE\SODIUM MONOFLUOROPHOSPHATE
     Indication: Malnutrition
     Dosage: UNK UNK, QD
     Route: 048
     Dates: start: 20190103
  42. SODIUM FLUORIDE [Concomitant]
     Active Substance: SODIUM FLUORIDE\SODIUM MONOFLUOROPHOSPHATE
     Indication: Malnutrition
     Dosage: 90 MG, QD
     Route: 048
     Dates: start: 20190103
  43. ASPIRIN [Concomitant]
     Active Substance: ASPIRIN
     Indication: Prophylaxis
     Dosage: 75 MG, QD
     Route: 048
  44. ASPIRIN [Concomitant]
     Active Substance: ASPIRIN
     Indication: Prophylaxis
     Dosage: 75 MG, QD (75 ML 30 ML QD (30 ML))
     Route: 048
  45. ASPIRIN [Concomitant]
     Active Substance: ASPIRIN
     Indication: Prophylaxis
     Dosage: 75 MG, QD
     Route: 048
  46. ASPIRIN [Concomitant]
     Active Substance: ASPIRIN
     Indication: Prophylaxis
     Dosage: 75 MG, QD
     Route: 048
  47. ASPIRIN [Concomitant]
     Active Substance: ASPIRIN
     Indication: Prophylaxis
     Dosage: 75 ML
     Route: 048
  48. MINERALS\VITAMINS [Concomitant]
     Active Substance: MINERALS\VITAMINS
     Indication: Prophylaxis
     Dosage: 1 DOSAGE FORM, QD
     Route: 048
     Dates: start: 20190104
  49. MINERALS\VITAMINS [Concomitant]
     Active Substance: MINERALS\VITAMINS
     Indication: Prophylaxis
     Dosage: UNK
  50. MINERALS\VITAMINS [Concomitant]
     Active Substance: MINERALS\VITAMINS
     Indication: Prophylaxis
     Dosage: UNK, QD
     Route: 048
     Dates: start: 20190104
  51. CHOLECALCIFEROL [Concomitant]
     Active Substance: CHOLECALCIFEROL
     Indication: Malnutrition
     Dosage: UNK,, DURATION: 14 DAYS
     Route: 048
     Dates: start: 20191016, end: 20191029
  52. CHOLECALCIFEROL [Concomitant]
     Active Substance: CHOLECALCIFEROL
     Indication: Malnutrition
     Dosage: UNK, DURATION: 246 DAYS
     Route: 048
     Dates: start: 20190212, end: 20191015
  53. CHOLECALCIFEROL [Concomitant]
     Active Substance: CHOLECALCIFEROL
     Indication: Malnutrition
     Dosage: UNK, BID, DURATION: 282 DAYS
     Route: 048
     Dates: start: 20190103, end: 20191011
  54. CHOLECALCIFEROL [Concomitant]
     Active Substance: CHOLECALCIFEROL
     Indication: Malnutrition
     Dosage: UNK
  55. CHOLECALCIFEROL [Concomitant]
     Active Substance: CHOLECALCIFEROL
     Indication: Malnutrition
     Dosage: UNK, BID, DURATION: 14 DAYS
     Route: 048
     Dates: start: 20191016, end: 20191029
  56. REVLIMID [Suspect]
     Active Substance: LENALIDOMIDE
     Indication: Plasma cell myeloma
     Dosage: 25 MG, QD,  DURATION : 19 DAYS
     Route: 048
     Dates: start: 20191213, end: 20191231
  57. REVLIMID [Suspect]
     Active Substance: LENALIDOMIDE
     Indication: Plasma cell myeloma
     Dosage: 25 MG, QD
     Route: 048
     Dates: start: 20191213
  58. REVLIMID [Suspect]
     Active Substance: LENALIDOMIDE
     Indication: Plasma cell myeloma
     Dosage: 25 MG, QD, EVERY MORNING,  DURATION : 4 DAYS
     Route: 048
     Dates: start: 20181210, end: 20181213
  59. REVLIMID [Suspect]
     Active Substance: LENALIDOMIDE
     Indication: Plasma cell myeloma
     Dosage: 25 MG, QD,  DURATION : 21 DAYS
     Route: 048
     Dates: start: 20191112, end: 20191202
  60. REVLIMID [Suspect]
     Active Substance: LENALIDOMIDE
     Indication: Plasma cell myeloma
     Dosage: 25 MG, QD,  DURATION : 21 DAYS
     Route: 048
     Dates: start: 20190712, end: 20190801
  61. REVLIMID [Suspect]
     Active Substance: LENALIDOMIDE
     Indication: Plasma cell myeloma
     Dosage: 25 MG, QD, EVERY MORNING, 25 MG DAILY , DURATION : 21 DAYS
     Route: 048
     Dates: start: 20181015, end: 20181104
  62. REVLIMID [Suspect]
     Active Substance: LENALIDOMIDE
     Indication: Plasma cell myeloma
     Dosage: UNK
     Route: 048
  63. REVLIMID [Suspect]
     Active Substance: LENALIDOMIDE
     Indication: Plasma cell myeloma
     Dosage: 25 MG, QD,
     Route: 048
     Dates: start: 20191210
  64. REVLIMID [Suspect]
     Active Substance: LENALIDOMIDE
     Indication: Plasma cell myeloma
     Dosage: 25 MG, QD, EVERY MORNING, DURATION : 21 DAYS
     Route: 048
     Dates: start: 20180917, end: 20181007
  65. REVLIMID [Suspect]
     Active Substance: LENALIDOMIDE
     Indication: Plasma cell myeloma
     Dosage: 25 MG, QD,  DURATION :117 DAYS
     Route: 048
     Dates: start: 20190906, end: 20191231
  66. REVLIMID [Suspect]
     Active Substance: LENALIDOMIDE
     Indication: Plasma cell myeloma
     Dosage: 25 MG, QD,  DURATION : 35 DAYS
     Route: 048
     Dates: start: 20190906, end: 20191010
  67. REVLIMID [Suspect]
     Active Substance: LENALIDOMIDE
     Indication: Plasma cell myeloma
     Dosage: 25 MG, QD,  DURATION :18 DAYS
     Route: 048
     Dates: start: 20190605, end: 20190622
  68. REVLIMID [Suspect]
     Active Substance: LENALIDOMIDE
     Indication: Plasma cell myeloma
     Dosage: 25 MG, AM, 25 MG DAILY
     Route: 048
     Dates: start: 20191213
  69. REVLIMID [Suspect]
     Active Substance: LENALIDOMIDE
     Indication: Plasma cell myeloma
     Dosage: UNK
     Route: 048
  70. REVLIMID [Suspect]
     Active Substance: LENALIDOMIDE
     Indication: Plasma cell myeloma
     Dosage: 300 MG, QW, DURATION : 19 DAYS
     Route: 065
     Dates: start: 20191213, end: 20191231
  71. REVLIMID [Suspect]
     Active Substance: LENALIDOMIDE
     Indication: Plasma cell myeloma
     Dosage: 25 MG, QD, DURATION : 20 DAYS
     Route: 048
     Dates: start: 20180821, end: 20180909
  72. REVLIMID [Suspect]
     Active Substance: LENALIDOMIDE
     Indication: Plasma cell myeloma
     Dosage: 25 MG, QD, EVERY MORNING, DURATION : 40 DAYS
     Route: 048
     Dates: start: 20180801, end: 20180909
  73. REVLIMID [Suspect]
     Active Substance: LENALIDOMIDE
     Indication: Plasma cell myeloma
     Dosage: 25 MG, QD,  DURATION : 21 DAYS
     Route: 048
     Dates: start: 20190614, end: 20190704
  74. REVLIMID [Suspect]
     Active Substance: LENALIDOMIDE
     Indication: Plasma cell myeloma
     Dosage: 4 MG, QW
     Route: 065
     Dates: start: 20190629
  75. REVLIMID [Suspect]
     Active Substance: LENALIDOMIDE
     Indication: Plasma cell myeloma
     Dosage: 25 MG, QD, EVERY MORNING,  DURATION : 21 DAYS
     Route: 048
     Dates: start: 20181112, end: 20181202
  76. REVLIMID [Suspect]
     Active Substance: LENALIDOMIDE
     Indication: Plasma cell myeloma
     Dosage: 25 MG, QD,  DURATION : 21 DAYS
     Route: 048
     Dates: start: 20190809, end: 20190829
  77. REVLIMID [Suspect]
     Active Substance: LENALIDOMIDE
     Indication: Plasma cell myeloma
     Dosage: UNK
     Route: 048
  78. REVLIMID [Suspect]
     Active Substance: LENALIDOMIDE
     Indication: Plasma cell myeloma
     Dosage: UNK
     Route: 048
  79. REVLIMID [Suspect]
     Active Substance: LENALIDOMIDE
     Indication: Plasma cell myeloma
     Dosage: UNK
     Route: 048
  80. REVLIMID [Suspect]
     Active Substance: LENALIDOMIDE
     Indication: Plasma cell myeloma
     Dosage: UNK
     Route: 065
  81. REVLIMID [Suspect]
     Active Substance: LENALIDOMIDE
     Indication: Plasma cell myeloma
     Dosage: UNK
     Route: 048
     Dates: start: 20191231
  82. REVLIMID [Suspect]
     Active Substance: LENALIDOMIDE
     Indication: Plasma cell myeloma
     Dosage: UNK
     Route: 065
  83. REVLIMID [Suspect]
     Active Substance: LENALIDOMIDE
     Indication: Plasma cell myeloma
     Dosage: UNK
     Route: 065
  84. REVLIMID [Suspect]
     Active Substance: LENALIDOMIDE
     Indication: Plasma cell myeloma
     Dosage: UNK
     Route: 048
     Dates: start: 20181210
  85. REVLIMID [Suspect]
     Active Substance: LENALIDOMIDE
     Indication: Plasma cell myeloma
     Dosage: 25 MG, AM
     Route: 048
     Dates: start: 20190123
  86. CHOLECALCIFEROL [Concomitant]
     Active Substance: CHOLECALCIFEROL
     Indication: Malnutrition
     Dosage: UNK, DURATION: 246 DAYS
     Route: 048
     Dates: start: 20190212, end: 20191015
  87. CHOLECALCIFEROL [Concomitant]
     Active Substance: CHOLECALCIFEROL
     Indication: Malnutrition
     Dosage: UNK, QD, DURATION: 14 DAYS
     Route: 048
     Dates: start: 20191016, end: 20191029
  88. CHOLECALCIFEROL [Concomitant]
     Active Substance: CHOLECALCIFEROL
     Indication: Malnutrition
     Dosage: UNK, BID, DURATION: 40 DAYS
     Route: 048
     Dates: start: 20190103, end: 20190211
  89. CHOLECALCIFEROL [Concomitant]
     Active Substance: CHOLECALCIFEROL
     Indication: Malnutrition
     Dosage: UNK, BID, DURATION: 246 DAYS
     Route: 048
     Dates: start: 20190212, end: 20191015
  90. CHOLECALCIFEROL [Concomitant]
     Active Substance: CHOLECALCIFEROL
     Indication: Malnutrition
     Dosage: UNK, QD, DURATION: 14 DAYS
     Route: 048
     Dates: start: 20191016, end: 20191029
  91. CHOLECALCIFEROL [Concomitant]
     Active Substance: CHOLECALCIFEROL
     Indication: Malnutrition
     Dosage: UNK, BID, DURATION: 282 DAYS
     Route: 048
     Dates: start: 20190103, end: 20191011
  92. FORTICAL [Concomitant]
     Active Substance: CALCITONIN SALMON
     Indication: Malnutrition
     Dosage: UNK, DURATION :282 DAYS
     Dates: start: 20190103, end: 20191011
  93. FORTICAL [Concomitant]
     Active Substance: CALCITONIN SALMON
     Indication: Malnutrition
     Dosage: UNK
  94. MANGANESE SULFATE [Concomitant]
     Active Substance: MANGANESE SULFATE
     Indication: Malnutrition
     Dosage: UNK
  95. MANGANESE SULFATE [Concomitant]
     Active Substance: MANGANESE SULFATE
     Indication: Malnutrition
     Dosage: UNK UNK, BID, DURATION: 282 DAYS
     Route: 048
     Dates: start: 20190103, end: 20191011
  96. MANGANESE SULFATE [Concomitant]
     Active Substance: MANGANESE SULFATE
     Indication: Malnutrition
     Dosage: UNK, QD, DURATION: 282 DAYS
     Route: 048
     Dates: start: 20190103, end: 20191011
  97. METOPROLOL [Concomitant]
     Active Substance: METOPROLOL
     Indication: Hypertension
     Dosage: 25 MG, BID
     Route: 048
  98. METOPROLOL [Concomitant]
     Active Substance: METOPROLOL
     Indication: Hypertension
     Dosage: 50 MG, QD
  99. METOPROLOL [Concomitant]
     Active Substance: METOPROLOL
     Indication: Hypertension
     Dosage: 50 MG, QD
     Route: 048
  100. METOPROLOL [Concomitant]
     Active Substance: METOPROLOL
     Indication: Hypertension
     Dosage: 50 MG, QD
     Route: 048
  101. METOPROLOL [Concomitant]
     Active Substance: METOPROLOL
     Indication: Hypertension
     Dosage: 100 MG, QD
     Route: 048
  102. METOPROLOL [Concomitant]
     Active Substance: METOPROLOL
     Indication: Hypertension
     Dosage: 25 MG
     Route: 048
  103. METOPROLOL [Concomitant]
     Active Substance: METOPROLOL
     Indication: Hypertension
     Dosage: 50 MG, QD
     Route: 048
  104. CUPRIC SULFATE ANHYDROUS [Concomitant]
     Active Substance: CUPRIC SULFATE ANHYDROUS
     Indication: Malnutrition
     Dosage: UNK, QD (BID), DURATION : 282 DAYS
     Route: 048
     Dates: start: 20190103, end: 20191011
  105. CUPRIC SULFATE ANHYDROUS [Concomitant]
     Active Substance: CUPRIC SULFATE ANHYDROUS
     Indication: Malnutrition
     Dosage: UNK, QD (BID), DURATION: 282 DAYS
     Route: 048
     Dates: start: 20190103, end: 20191011
  106. CUPRIC SULFATE ANHYDROUS [Concomitant]
     Active Substance: CUPRIC SULFATE ANHYDROUS
     Indication: Malnutrition
     Dosage: UNK
  107. TINZAPARIN [Concomitant]
     Active Substance: TINZAPARIN
     Indication: Prophylaxis
     Dosage: 10000 IU, QD
     Route: 058
     Dates: start: 20190110
  108. CALCIUM CARBONATE [Concomitant]
     Active Substance: CALCIUM CARBONATE
     Indication: Malnutrition
     Dosage: UNK, BID, DURATION: 282 DAYS
     Route: 048
     Dates: start: 20190103, end: 20191011
  109. COTRIMOXAZOLE [Concomitant]
     Active Substance: SULFAMETHOXAZOLE\TRIMETHOPRIM
     Indication: Product used for unknown indication
     Dosage: 480 MG, QD
     Dates: start: 20170817
  110. CYCLOPHOSPHAMIDE [Concomitant]
     Active Substance: CYCLOPHOSPHAMIDE
     Indication: Plasma cell myeloma
     Dosage: UNK
  111. CYCLOPHOSPHAMIDE [Concomitant]
     Active Substance: CYCLOPHOSPHAMIDE
     Indication: Plasma cell myeloma
     Dosage: 4 MG, QD, DURATION: 14 DAYS
     Dates: start: 20191213, end: 20191226
  112. CYCLOPHOSPHAMIDE [Concomitant]
     Active Substance: CYCLOPHOSPHAMIDE
     Indication: Plasma cell myeloma
     Dosage: 7800 MG, QD, DURATION: 1 DAY
     Dates: start: 20191213, end: 20191213
  113. CYCLOPHOSPHAMIDE [Concomitant]
     Active Substance: CYCLOPHOSPHAMIDE
     Indication: Plasma cell myeloma
     Dosage: 300 MG, QD
     Dates: end: 20191010
  114. CYCLOPHOSPHAMIDE [Concomitant]
     Active Substance: CYCLOPHOSPHAMIDE
     Indication: Plasma cell myeloma
     Dosage: 7800 MG
     Dates: start: 20191213
  115. CYCLOPHOSPHAMIDE [Concomitant]
     Active Substance: CYCLOPHOSPHAMIDE
     Indication: Plasma cell myeloma
     Dosage: 300 MG, QD
     Dates: start: 20191010
  116. CYCLOPHOSPHAMIDE [Concomitant]
     Active Substance: CYCLOPHOSPHAMIDE
     Indication: Plasma cell myeloma
     Dosage: 36.59 MG
     Dates: start: 2019
  117. CYCLOPHOSPHAMIDE [Concomitant]
     Active Substance: CYCLOPHOSPHAMIDE
     Indication: Plasma cell myeloma
     Dosage: UNK
  118. CYCLOPHOSPHAMIDE [Concomitant]
     Active Substance: CYCLOPHOSPHAMIDE
     Indication: Plasma cell myeloma
     Dosage: UNK
     Dates: start: 20191213
  119. CYCLOPHOSPHAMIDE [Concomitant]
     Active Substance: CYCLOPHOSPHAMIDE
     Indication: Plasma cell myeloma
     Dosage: 36.59 MG
     Dates: start: 20191213
  120. CYCLOPHOSPHAMIDE [Concomitant]
     Active Substance: CYCLOPHOSPHAMIDE
     Indication: Plasma cell myeloma
     Dosage: 300 MG, QD
     Dates: start: 20190709
  121. CYCLOPHOSPHAMIDE [Concomitant]
     Active Substance: CYCLOPHOSPHAMIDE
     Indication: Plasma cell myeloma
     Dosage: UNK
  122. CYCLOPHOSPHAMIDE [Concomitant]
     Active Substance: CYCLOPHOSPHAMIDE
     Indication: Plasma cell myeloma
     Dosage: 300 MG, QD
  123. CYCLOPHOSPHAMIDE [Concomitant]
     Active Substance: CYCLOPHOSPHAMIDE
     Indication: Plasma cell myeloma
     Dosage: UNK
     Dates: start: 2019
  124. CYCLOPHOSPHAMIDE [Concomitant]
     Active Substance: CYCLOPHOSPHAMIDE
     Indication: Plasma cell myeloma
     Dosage: 36.6 MG
     Dates: start: 2019, end: 20191213
  125. CYCLOPHOSPHAMIDE [Concomitant]
     Active Substance: CYCLOPHOSPHAMIDE
     Indication: Plasma cell myeloma
     Dosage: 300 MG, QD
  126. CYCLOPHOSPHAMIDE [Concomitant]
     Active Substance: CYCLOPHOSPHAMIDE
     Indication: Plasma cell myeloma
     Dosage: UNK
  127. CYCLOPHOSPHAMIDE [Concomitant]
     Active Substance: CYCLOPHOSPHAMIDE
     Indication: Plasma cell myeloma
     Dosage: UNK
  128. CYCLOPHOSPHAMIDE [Concomitant]
     Active Substance: CYCLOPHOSPHAMIDE
     Indication: Plasma cell myeloma
     Dosage: 36.6 MG
     Dates: start: 2019
  129. CYCLOPHOSPHAMIDE [Concomitant]
     Active Substance: CYCLOPHOSPHAMIDE
     Indication: Plasma cell myeloma
     Dosage: 300 MG, QD
  130. CYCLOPHOSPHAMIDE [Concomitant]
     Active Substance: CYCLOPHOSPHAMIDE
     Indication: Plasma cell myeloma
     Dosage: UNK
     Dates: start: 2019, end: 20191226
  131. CYCLOPHOSPHAMIDE [Concomitant]
     Active Substance: CYCLOPHOSPHAMIDE
     Indication: Plasma cell myeloma
     Dosage: 300 MG, QD, DURATION: 34 DAYS
     Dates: start: 20190907, end: 20191010
  132. CYCLOPHOSPHAMIDE [Concomitant]
     Active Substance: CYCLOPHOSPHAMIDE
     Indication: Plasma cell myeloma
     Dosage: 300 MG, QW, DURATION: 16 DAYS
     Dates: start: 20191213, end: 20191228
  133. CYCLOPHOSPHAMIDE [Concomitant]
     Active Substance: CYCLOPHOSPHAMIDE
     Indication: Plasma cell myeloma
     Dosage: 300 MG, QD
     Dates: start: 20191213
  134. CYCLOPHOSPHAMIDE [Concomitant]
     Active Substance: CYCLOPHOSPHAMIDE
     Indication: Plasma cell myeloma
     Dosage: 11000 MG
     Dates: end: 20191213
  135. VITAMINS [Concomitant]
     Active Substance: VITAMINS
     Indication: Product used for unknown indication
     Dosage: 1 DOSAGE FORM DAILY DOSE 1 TABLET
     Route: 048
     Dates: start: 20190104
  136. AMLODIPINE [Concomitant]
     Active Substance: AMLODIPINE BESYLATE
     Indication: Hypertension
     Dosage: 10 MG, QD
     Route: 048
     Dates: start: 20191204
  137. AMLODIPINE [Concomitant]
     Active Substance: AMLODIPINE BESYLATE
     Indication: Hypertension
     Dosage: 10 MG, QD
     Route: 048
     Dates: start: 20191204, end: 20191204
  138. AMLODIPINE [Concomitant]
     Active Substance: AMLODIPINE BESYLATE
     Indication: Hypertension
     Dosage: 10 MG, QD
     Route: 048
  139. AMLODIPINE [Concomitant]
     Active Substance: AMLODIPINE BESYLATE
     Indication: Hypertension
     Dosage: 10 MG, QD
     Route: 048
  140. AMLODIPINE [Concomitant]
     Active Substance: AMLODIPINE BESYLATE
     Indication: Hypertension
     Dosage: 10 MG, QD
     Route: 048
     Dates: end: 20191204
  141. INFLUENZA VIRUS VACCINE [Concomitant]
     Active Substance: INFLUENZA VIRUS VACCINE
     Indication: Prophylaxis
     Dosage: 1 DOSAGE FORM, QD (1 AMPULE), DURATION: 1 DAY
     Dates: start: 20191112, end: 20191112
  142. INFLUENZA VIRUS VACCINE [Concomitant]
     Active Substance: INFLUENZA VIRUS VACCINE
     Indication: Prophylaxis
     Dosage: UNK
  143. ASPIRIN [Concomitant]
     Active Substance: ASPIRIN
     Indication: Prophylaxis
     Dosage: 75 ML, QD
     Route: 048
  144. ASPIRIN [Concomitant]
     Active Substance: ASPIRIN
     Indication: Prophylaxis
     Dosage: 75 ML, QD (30 ML QD)
     Route: 048
  145. ASPIRIN [Concomitant]
     Active Substance: ASPIRIN
     Indication: Prophylaxis
     Dosage: 75 ML, QD
     Route: 048
  146. SULFAMETHOXAZOLE\TRIMETHOPRIM [Concomitant]
     Active Substance: SULFAMETHOXAZOLE\TRIMETHOPRIM
     Indication: Prophylaxis
     Dosage: 20 ML, QD, DURATION: 287 DAYS
     Route: 048
     Dates: start: 20190102, end: 20191015
  147. SULFAMETHOXAZOLE\TRIMETHOPRIM [Concomitant]
     Active Substance: SULFAMETHOXAZOLE\TRIMETHOPRIM
     Indication: Prophylaxis
     Dosage: 10 ML, QD
     Route: 048
     Dates: start: 20191011
  148. CARBOHYDRATES\FATTY ACIDS\MINERALS\PROTEIN\VITAMINS [Concomitant]
     Active Substance: CARBOHYDRATES\FATTY ACIDS\MINERALS\PROTEIN\VITAMINS
     Indication: Malnutrition
     Dosage: UNK UNK, BID,  DURATION : 282 DAYS
     Route: 048
     Dates: start: 20190103, end: 20191011
  149. CARBOHYDRATES\FATTY ACIDS\MINERALS\PROTEIN\VITAMINS [Concomitant]
     Active Substance: CARBOHYDRATES\FATTY ACIDS\MINERALS\PROTEIN\VITAMINS
     Indication: Malnutrition
     Dosage: 1 DOSAGE FORM
     Route: 048
     Dates: start: 20190103
  150. CARBOHYDRATES\FATTY ACIDS\MINERALS\PROTEIN\VITAMINS [Concomitant]
     Active Substance: CARBOHYDRATES\FATTY ACIDS\MINERALS\PROTEIN\VITAMINS
     Indication: Malnutrition
     Dosage: UNK, QD,  DURATION : 301 DAYS
     Route: 048
     Dates: start: 20190102, end: 20191029
  151. CARBOHYDRATES\FATTY ACIDS\MINERALS\PROTEIN\VITAMINS [Concomitant]
     Active Substance: CARBOHYDRATES\FATTY ACIDS\MINERALS\PROTEIN\VITAMINS
     Indication: Malnutrition
     Dosage: 2 DOSAGE FORM, QD,  DURATION : 282 DAYS
     Route: 048
     Dates: start: 20190103, end: 20191011
  152. CARBOHYDRATES\FATTY ACIDS\MINERALS\PROTEIN\VITAMINS [Concomitant]
     Active Substance: CARBOHYDRATES\FATTY ACIDS\MINERALS\PROTEIN\VITAMINS
     Indication: Malnutrition
     Dosage: UNK UNK, QD, DURATION: 282 DAYS
     Route: 048
     Dates: start: 20190103, end: 20191011
  153. NINLARO [Suspect]
     Active Substance: IXAZOMIB CITRATE
     Indication: Plasma cell myeloma
     Dosage: 20 MG, QW, DURATION : 16 DAYS
     Route: 048
     Dates: start: 20191213, end: 20191228
  154. DIETARY SUPPLEMENT [Concomitant]
     Active Substance: DIETARY SUPPLEMENT
     Indication: Malnutrition
     Dosage: 85 MG, QD, DURATION : 5 DAYS
     Route: 048
     Dates: start: 20190107, end: 20190111
  155. DIETARY SUPPLEMENT [Concomitant]
     Active Substance: DIETARY SUPPLEMENT
     Indication: Malnutrition
     Dosage: 1 DOSAGE FORM, QD,  DURATION : 301 DAYS
     Route: 048
     Dates: start: 20190102, end: 20191029
  156. DIETARY SUPPLEMENT [Concomitant]
     Active Substance: DIETARY SUPPLEMENT
     Indication: Malnutrition
     Dosage: UNK UNK, QD,  DURATION : 313 DAYS
     Route: 048
     Dates: start: 20190103, end: 20191111
  157. DIETARY SUPPLEMENT [Concomitant]
     Active Substance: DIETARY SUPPLEMENT
     Indication: Malnutrition
     Dosage: 1 DOSAGE FORM, QD, DURATION: 301 DAYS
     Route: 048
     Dates: start: 20190102, end: 20191029
  158. COTRIMOXAZOLE [Concomitant]
     Active Substance: SULFAMETHOXAZOLE\TRIMETHOPRIM
     Indication: Antifungal prophylaxis
     Dosage: 480 MG, QD, DURATION: 425 DAYS
     Route: 048
     Dates: start: 20180817, end: 20191015
  159. SODIUM PHOSPHATE, MONOBASIC, ANHYDROUS [Concomitant]
     Active Substance: SODIUM PHOSPHATE, MONOBASIC, ANHYDROUS
     Indication: Product used for unknown indication
     Dosage: 1 DOSAGE FORM,  DURATION : 6 DAYS
     Route: 048
     Dates: start: 20190107, end: 20190112
  160. MYCOSTATIN [Concomitant]
     Active Substance: NYSTATIN
     Indication: Tongue coated
     Dosage: 420 ML
     Route: 048
  161. MYCOSTATIN [Concomitant]
     Active Substance: NYSTATIN
     Indication: Tongue coated
     Dosage: 450 ML
     Route: 048
     Dates: start: 20191116
  162. MYCOSTATIN [Concomitant]
     Active Substance: NYSTATIN
     Indication: Tongue coated
     Dosage: 3 ML, QD, DURATION: 35 DAYS
     Route: 048
     Dates: start: 20191116, end: 20191220
  163. MYCOSTATIN [Concomitant]
     Active Substance: NYSTATIN
     Indication: Tongue coated
     Dosage: 420 ML
     Route: 048
     Dates: start: 20190104
  164. MYCOSTATIN [Concomitant]
     Active Substance: NYSTATIN
     Indication: Tongue coated
     Dosage: 420 ML
     Route: 048
  165. MYCOSTATIN [Concomitant]
     Active Substance: NYSTATIN
     Indication: Tongue coated
     Dosage: 1 DOSAGE FORM
     Route: 048
  166. MYCOSTATIN [Concomitant]
     Active Substance: NYSTATIN
     Indication: Tongue coated
     Dosage: 9 MG, QD, DURATION: 35 DAYS
     Route: 048
     Dates: start: 20191116, end: 20191220
  167. MYCOSTATIN [Concomitant]
     Active Substance: NYSTATIN
     Indication: Tongue coated
     Dosage: UNK
  168. MYCOSTATIN [Concomitant]
     Active Substance: NYSTATIN
     Indication: Tongue coated
     Dosage: 1 DOSAGE FORM
     Route: 048
     Dates: start: 20190104
  169. MYCOSTATIN [Concomitant]
     Active Substance: NYSTATIN
     Indication: Tongue coated
     Dosage: 9 ML, QD, DURATION: 35 DAYS
     Route: 048
     Dates: start: 20191116, end: 20191220
  170. MYCOSTATIN [Concomitant]
     Active Substance: NYSTATIN
     Indication: Tongue coated
     Dosage: UNK
     Route: 048
     Dates: start: 20190104
  171. IXAZOMIB [Suspect]
     Active Substance: IXAZOMIB
     Indication: Plasma cell myeloma
     Dosage: 4 MG, QW
     Route: 048
  172. IXAZOMIB [Suspect]
     Active Substance: IXAZOMIB
     Indication: Plasma cell myeloma
     Dosage: UNK
     Route: 048
     Dates: start: 20191231
  173. IXAZOMIB [Suspect]
     Active Substance: IXAZOMIB
     Indication: Plasma cell myeloma
     Dosage: 4 MG, QW
     Route: 048
     Dates: start: 20190803, end: 20190809
  174. IXAZOMIB [Suspect]
     Active Substance: IXAZOMIB
     Indication: Plasma cell myeloma
     Dosage: 47.5 MG, QW
     Route: 048
     Dates: start: 20190615
  175. IXAZOMIB [Suspect]
     Active Substance: IXAZOMIB
     Indication: Plasma cell myeloma
     Dosage: UNK
     Route: 048
  176. IXAZOMIB [Suspect]
     Active Substance: IXAZOMIB
     Indication: Plasma cell myeloma
     Dosage: 4 MG
     Route: 048
     Dates: start: 20190803, end: 20190809
  177. IXAZOMIB [Suspect]
     Active Substance: IXAZOMIB
     Indication: Plasma cell myeloma
     Dosage: 4 MG, QW
     Route: 048
     Dates: start: 20190615, end: 20190622
  178. IXAZOMIB [Suspect]
     Active Substance: IXAZOMIB
     Indication: Plasma cell myeloma
     Dosage: 4 MG, QW
     Route: 048
  179. IXAZOMIB [Suspect]
     Active Substance: IXAZOMIB
     Indication: Plasma cell myeloma
     Dosage: 4 MG, QW
     Route: 048
     Dates: start: 20190620, end: 20190802
  180. IXAZOMIB [Suspect]
     Active Substance: IXAZOMIB
     Indication: Plasma cell myeloma
     Dosage: 800 MG
     Route: 048
     Dates: start: 20191231
  181. IXAZOMIB [Suspect]
     Active Substance: IXAZOMIB
     Indication: Plasma cell myeloma
     Dosage: 4 MG, QW
     Route: 048
     Dates: start: 20191213, end: 20191226
  182. IXAZOMIB [Suspect]
     Active Substance: IXAZOMIB
     Indication: Plasma cell myeloma
     Dosage: UNK
     Route: 048
  183. IXAZOMIB [Suspect]
     Active Substance: IXAZOMIB
     Indication: Plasma cell myeloma
     Dosage: 4 MG, QW
     Route: 048
     Dates: start: 20190615, end: 20190619
  184. IXAZOMIB [Suspect]
     Active Substance: IXAZOMIB
     Indication: Plasma cell myeloma
     Dosage: 4 MG, QW
     Route: 048
     Dates: start: 20190615, end: 20191226
  185. IXAZOMIB [Suspect]
     Active Substance: IXAZOMIB
     Indication: Plasma cell myeloma
     Dosage: 30.286 MG
     Route: 065
  186. IXAZOMIB [Suspect]
     Active Substance: IXAZOMIB
     Indication: Plasma cell myeloma
     Dosage: UNK
     Route: 048
  187. IXAZOMIB [Suspect]
     Active Substance: IXAZOMIB
     Indication: Plasma cell myeloma
     Dosage: 4 MG, QW
     Route: 048
  188. IXAZOMIB [Suspect]
     Active Substance: IXAZOMIB
     Indication: Plasma cell myeloma
     Dosage: 4 MG, QW
     Route: 048
     Dates: start: 20190629, end: 20190713
  189. IXAZOMIB [Suspect]
     Active Substance: IXAZOMIB
     Indication: Plasma cell myeloma
     Dosage: UNK
     Route: 048
  190. IXAZOMIB [Suspect]
     Active Substance: IXAZOMIB
     Indication: Plasma cell myeloma
     Dosage: 4 MG, QW
     Route: 048
     Dates: start: 20190615, end: 20190615
  191. IXAZOMIB [Suspect]
     Active Substance: IXAZOMIB
     Indication: Plasma cell myeloma
     Dosage: 4 MG, QW
     Route: 048
     Dates: start: 20190810, end: 20190824
  192. IXAZOMIB [Suspect]
     Active Substance: IXAZOMIB
     Indication: Plasma cell myeloma
     Dosage: 4 MG
     Route: 048
     Dates: start: 20190615, end: 20190615
  193. ZINC SULFATE [Concomitant]
     Active Substance: ZINC SULFATE
     Indication: Malnutrition
     Dosage: UNK, QD,  DURATION : 282 DAYS
     Route: 048
     Dates: start: 20190103, end: 20191011
  194. ZINC SULFATE [Concomitant]
     Active Substance: ZINC SULFATE
     Indication: Malnutrition
     Dosage: UNK
  195. ZINC SULFATE [Concomitant]
     Active Substance: ZINC SULFATE
     Indication: Malnutrition
     Dosage: UNK, QD, DURATION: 282 DAYS
     Route: 048
     Dates: start: 20190103, end: 20191011
  196. CALCIUM\CHOLECALCIFEROL [Concomitant]
     Active Substance: CALCIUM\CHOLECALCIFEROL
     Indication: Bone disorder
     Dosage: 2 DOSAGE FORM, BID, 2 TABLET
     Route: 048
     Dates: start: 20191015, end: 20191029
  197. CALCIUM\CHOLECALCIFEROL [Concomitant]
     Active Substance: CALCIUM\CHOLECALCIFEROL
     Indication: Bone disorder
     Dosage: 18 DOSAGE FORM, QD,  DURATION : 282 DAYS
     Route: 048
     Dates: start: 20190103, end: 20191011
  198. CALCIUM\CHOLECALCIFEROL [Concomitant]
     Active Substance: CALCIUM\CHOLECALCIFEROL
     Indication: Bone disorder
     Dosage: 6 DOSAGE FORM, QD (2 TABLETS),  DURATION : 40 DAYS
     Route: 048
     Dates: start: 20190103, end: 20190211
  199. CALCIUM\CHOLECALCIFEROL [Concomitant]
     Active Substance: CALCIUM\CHOLECALCIFEROL
     Indication: Bone disorder
     Dosage: 2 DOSAGE FORM, QD,  DURATION : 282 DAYS
     Route: 048
     Dates: start: 20190103, end: 20191011
  200. CALCIUM\CHOLECALCIFEROL [Concomitant]
     Active Substance: CALCIUM\CHOLECALCIFEROL
     Indication: Bone disorder
     Dosage: 2 DOSAGE FORM, QD
     Route: 048
     Dates: start: 20190104
  201. CALCIUM\CHOLECALCIFEROL [Concomitant]
     Active Substance: CALCIUM\CHOLECALCIFEROL
     Indication: Bone disorder
     Dosage: 2 DOSAGE FORM, BID, 2 TABLET (4 DOSAGE FORM QD)),  DURATION : 246 DAYS
     Route: 048
     Dates: start: 20190212, end: 20191015
  202. CALCIUM\CHOLECALCIFEROL [Concomitant]
     Active Substance: CALCIUM\CHOLECALCIFEROL
     Indication: Bone disorder
     Dosage: UNK, QD,  DURATION :14  DAYS
     Route: 048
     Dates: start: 20191016, end: 20191029
  203. CALCIUM\CHOLECALCIFEROL [Concomitant]
     Active Substance: CALCIUM\CHOLECALCIFEROL
     Indication: Bone disorder
     Dosage: 1 DOSAGE FORM, QD
     Route: 048
     Dates: start: 20190104
  204. CALCIUM\CHOLECALCIFEROL [Concomitant]
     Active Substance: CALCIUM\CHOLECALCIFEROL
     Indication: Bone disorder
     Dosage: 8DOSAGE FORM, QD,  DURATION : 282 DAYS
     Route: 048
     Dates: start: 20190103, end: 20191011
  205. CALCIUM\CHOLECALCIFEROL [Concomitant]
     Active Substance: CALCIUM\CHOLECALCIFEROL
     Indication: Bone disorder
     Dosage: 4 DOSAGE FORM, QD,  DURATION : 282 DAYS
     Route: 048
     Dates: start: 20190103, end: 20191011
  206. CALCIUM\CHOLECALCIFEROL [Concomitant]
     Active Substance: CALCIUM\CHOLECALCIFEROL
     Indication: Bone disorder
     Dosage: UNK, QD
     Route: 048
     Dates: start: 20190103, end: 20191011
  207. CALCIUM\CHOLECALCIFEROL [Concomitant]
     Active Substance: CALCIUM\CHOLECALCIFEROL
     Indication: Bone disorder
     Dosage: UNK, QD
     Route: 048
     Dates: start: 20190103, end: 20191011
  208. SODIUM FLUORIDE [Concomitant]
     Active Substance: SODIUM FLUORIDE\SODIUM MONOFLUOROPHOSPHATE
     Indication: Malnutrition
     Dosage: 90 ML, QD
     Route: 048
     Dates: start: 20190103
  209. CALCITONIN [Concomitant]
     Active Substance: CALCITONIN
     Indication: Malnutrition
     Dosage: UNK, QD, DURATION: 255 DAYS
     Route: 048
     Dates: start: 20190130, end: 20191011
  210. CALCITONIN [Concomitant]
     Active Substance: CALCITONIN
     Indication: Malnutrition
     Dosage: UNK
  211. CALCITONIN [Concomitant]
     Active Substance: CALCITONIN
     Indication: Malnutrition
     Dosage: UNK
  212. CALCITONIN [Concomitant]
     Active Substance: CALCITONIN
     Indication: Malnutrition
     Dosage: UNK, DURATION: 282 DAYS
     Route: 048
     Dates: start: 20190103, end: 20191011
  213. CALCITONIN [Concomitant]
     Active Substance: CALCITONIN
     Indication: Malnutrition
     Dosage: UNK, DURATION: 255 DAYS
     Route: 048
     Dates: start: 20190130, end: 20191011
  214. AUGMENTIN [Concomitant]
     Active Substance: AMOXICILLIN\CLAVULANATE POTASSIUM
     Indication: Product used for unknown indication
     Dosage: 625 MG (1875 MG), DURATION: 2 DAYS
     Route: 048
     Dates: start: 20190102, end: 20190103
  215. AUGMENTIN [Concomitant]
     Active Substance: AMOXICILLIN\CLAVULANATE POTASSIUM
     Indication: Product used for unknown indication
     Dosage: 1.2 G (3.6), DURATION: 2 DAYS
     Route: 042
     Dates: start: 20190102, end: 20190103
  216. SOLPADOL [Concomitant]
     Indication: Product used for unknown indication
     Dosage: 2 DOSAGE FORM, PRN
     Route: 048
  217. DECAPEPTYL [Concomitant]
     Indication: Prostate cancer
     Dosage: 18.24 MG
  218. DECAPEPTYL [Concomitant]
     Indication: Prostate cancer
     Dosage: 45 MG, QD
     Dates: start: 20190515
  219. DECAPEPTYL [Concomitant]
     Indication: Prostate cancer
     Dosage: UNK
  220. DECAPEPTYL [Concomitant]
     Indication: Prostate cancer
     Dosage: 45 MG
     Dates: start: 20190515
  221. TRIMETHOPRIM [Concomitant]
     Active Substance: TRIMETHOPRIM
     Indication: Antifungal prophylaxis
     Dosage: 20 ML, QD, DURATION: 287 DAYS
     Route: 048
     Dates: start: 20190102, end: 20191015
  222. TRIMETHOPRIM [Concomitant]
     Active Substance: TRIMETHOPRIM
     Indication: Antifungal prophylaxis
     Dosage: 480 MG, QD, DURATION: 425 DAYS
     Route: 048
     Dates: start: 20180817, end: 20191015
  223. TRIMETHOPRIM [Concomitant]
     Active Substance: TRIMETHOPRIM
     Indication: Antifungal prophylaxis
     Dosage: 10 ML
     Route: 048
     Dates: start: 20191011
  224. TRIMETHOPRIM [Concomitant]
     Active Substance: TRIMETHOPRIM
     Indication: Antifungal prophylaxis
     Dosage: 480 MG, QD
     Route: 048
     Dates: start: 20191011
  225. TRIMETHOPRIM [Concomitant]
     Active Substance: TRIMETHOPRIM
     Indication: Antifungal prophylaxis
     Dosage: UNK ML, DURATION: 287 DAYS
     Route: 048
     Dates: start: 20190102, end: 20191015
  226. TRIMETHOPRIM [Concomitant]
     Active Substance: TRIMETHOPRIM
     Indication: Antifungal prophylaxis
     Dosage: 480 MG, QD
     Route: 048
  227. TRIMETHOPRIM [Concomitant]
     Active Substance: TRIMETHOPRIM
     Indication: Antifungal prophylaxis
     Dosage: 480 MG, QD
     Route: 048
  228. TRIMETHOPRIM [Concomitant]
     Active Substance: TRIMETHOPRIM
     Indication: Antifungal prophylaxis
     Dosage: 10 ML
     Route: 048
     Dates: start: 20191011
  229. TRIMETHOPRIM [Concomitant]
     Active Substance: TRIMETHOPRIM
     Indication: Antifungal prophylaxis
     Dosage: UNK MG
     Dates: start: 20191011
  230. MAGNESIUM SULFATE [Concomitant]
     Active Substance: MAGNESIUM SULFATE\MAGNESIUM SULFATE HEPTAHYDRATE
     Indication: Malnutrition
     Dosage: UNK
  231. MAGNESIUM SULFATE [Concomitant]
     Active Substance: MAGNESIUM SULFATE\MAGNESIUM SULFATE HEPTAHYDRATE
     Indication: Malnutrition
     Dosage: UNK, BID, DURATION: 282 DAYS
     Route: 048
     Dates: start: 20190103, end: 20191011
  232. MAGNESIUM SULFATE [Concomitant]
     Active Substance: MAGNESIUM SULFATE\MAGNESIUM SULFATE HEPTAHYDRATE
     Indication: Malnutrition
     Dosage: UNK, BID, DURATION: 282 DAYS
     Route: 048
     Dates: start: 20190103, end: 20191011
  233. PIPERACILLIN SODIUM\TAZOBACTAM SODIUM [Concomitant]
     Active Substance: PIPERACILLIN SODIUM\TAZOBACTAM SODIUM
     Indication: Product used for unknown indication
     Dosage: 4.5 G, DURATION: 5 DAYS
     Route: 042
     Dates: start: 20190106, end: 20190110
  234. FOLIC ACID [Concomitant]
     Active Substance: FOLIC ACID
     Indication: Anaemia
     Dosage: 5 MG, QD
     Route: 048
  235. FOLIC ACID [Concomitant]
     Active Substance: FOLIC ACID
     Indication: Anaemia
     Dosage: 5 MG
     Route: 048
  236. FOLIC ACID [Concomitant]
     Active Substance: FOLIC ACID
     Indication: Anaemia
     Dosage: 5 MG, QD
     Route: 048
  237. FOLIC ACID [Concomitant]
     Active Substance: FOLIC ACID
     Indication: Anaemia
     Dosage: 5 MG, QD
     Route: 048
  238. FOLIC ACID [Concomitant]
     Active Substance: FOLIC ACID
     Indication: Anaemia
     Dosage: 5 MG
     Route: 048
  239. FOLIC ACID [Concomitant]
     Active Substance: FOLIC ACID
     Indication: Anaemia
     Dosage: 5 MG
     Route: 048
  240. CALCITONIN SALMON [Concomitant]
     Active Substance: CALCITONIN SALMON
     Indication: Product used for unknown indication
     Dosage: UNK, QD, DURATION : 282 DAYS
     Route: 048
     Dates: start: 20190103, end: 20191011
  241. CALCITONIN SALMON [Concomitant]
     Active Substance: CALCITONIN SALMON
     Indication: Product used for unknown indication
     Dosage: UNK, DURATION : 10 DAYS
     Route: 048
     Dates: start: 20191020, end: 20191029
  242. CALCITONIN SALMON [Concomitant]
     Active Substance: CALCITONIN SALMON
     Indication: Product used for unknown indication
     Dosage: UNK, QD, DURATION: 282 DAYS
     Route: 048
     Dates: start: 20190103, end: 20191011
  243. CALCITONIN SALMON [Concomitant]
     Active Substance: CALCITONIN SALMON
     Indication: Product used for unknown indication
     Dosage: UNK, QD, DURATION: 282 DAYS
     Route: 048
     Dates: start: 20190103, end: 20191011
  244. CALCITONIN SALMON [Concomitant]
     Active Substance: CALCITONIN SALMON
     Indication: Product used for unknown indication
     Dosage: UNK
  245. CALCITONIN SALMON [Concomitant]
     Active Substance: CALCITONIN SALMON
     Indication: Product used for unknown indication
     Dosage: UNK, BID, DURATION: 282 DAYS
     Route: 048
     Dates: start: 20190103, end: 20191011
  246. VITAMINS NOS [Concomitant]
     Active Substance: VITAMINS
     Indication: Malnutrition
     Dosage: UNK, QD, DURATION: 28 DAYS
     Dates: start: 20190102, end: 20190129
  247. VITAMINS NOS [Concomitant]
     Active Substance: VITAMINS
     Indication: Malnutrition
     Dosage: 1 DOSAGE FORM, QD, DURATION: 282 DAYS
     Route: 048
     Dates: start: 20190103, end: 20191011
  248. VITAMINS NOS [Concomitant]
     Active Substance: VITAMINS
     Indication: Malnutrition
     Dosage: UNK UNK, QD
     Route: 048
     Dates: start: 20190104
  249. VITAMINS NOS [Concomitant]
     Active Substance: VITAMINS
     Indication: Malnutrition
     Dosage: UNK UNK, QD, DURATION: 313 DAYS
     Route: 048
     Dates: start: 20190103, end: 20191111
  250. MEGACE [Concomitant]
     Active Substance: MEGESTROL ACETATE
     Indication: Malnutrition
     Dosage: 7.5 ML, QD
     Route: 048
     Dates: start: 20191011
  251. MEGACE [Concomitant]
     Active Substance: MEGESTROL ACETATE
     Indication: Malnutrition
     Dosage: 15 MG, QD
     Route: 048
     Dates: start: 20191011
  252. MEGACE [Concomitant]
     Active Substance: MEGESTROL ACETATE
     Indication: Malnutrition
     Dosage: 15 ML, QD
     Route: 048
     Dates: start: 20191019
  253. MEGACE [Concomitant]
     Active Substance: MEGESTROL ACETATE
     Indication: Malnutrition
     Dosage: 7.5 ML, BID
     Route: 048
     Dates: start: 20191011
  254. ZOLPIDEM [Concomitant]
     Active Substance: ZOLPIDEM TARTRATE
     Indication: Prophylaxis
     Dosage: 10 MG, DURATION: 440 DAYS
     Route: 048
     Dates: start: 20180816, end: 20191029
  255. PENTAZOCINE LACTATE [Concomitant]
     Active Substance: PENTAZOCINE LACTATE
     Indication: Malnutrition
     Dosage: UNK, BID, DURATION : 9 DAYS
     Route: 048
     Dates: start: 20191003, end: 20191011
  256. PENTAZOCINE LACTATE [Concomitant]
     Active Substance: PENTAZOCINE LACTATE
     Indication: Malnutrition
     Dosage: UNK, BID, DURATION : 10 DAYS
     Route: 048
     Dates: start: 20191020, end: 20191029
  257. PENTAZOCINE LACTATE [Concomitant]
     Active Substance: PENTAZOCINE LACTATE
     Indication: Malnutrition
     Dosage: UNK, BID, DURATION : 1 DAYS
     Route: 048
     Dates: start: 20191020, end: 20191020
  258. LIDOCAINE [Concomitant]
     Active Substance: LIDOCAINE
     Indication: Tongue coated
     Dosage: 90 ML, QD, DURATION: 35 DAYS
     Route: 048
     Dates: start: 20191116, end: 20191220
  259. LIDOCAINE [Concomitant]
     Active Substance: LIDOCAINE
     Indication: Tongue coated
     Dosage: 30 ML, QD, DURATION: 35 DAYS
     Route: 048
     Dates: start: 20191116, end: 20191220
  260. LIDOCAINE [Concomitant]
     Active Substance: LIDOCAINE
     Indication: Tongue coated
     Dosage: UNK, QD, DURATION: 282 DAYS
     Route: 048
     Dates: start: 20190103, end: 20191011
  261. LIDOCAINE [Concomitant]
     Active Substance: LIDOCAINE
     Indication: Tongue coated
     Dosage: 90 ML, TID, DURATION: 35 DAYS
     Route: 048
     Dates: start: 20191116, end: 20191220
  262. LIDOCAINE [Concomitant]
     Active Substance: LIDOCAINE
     Indication: Tongue coated
     Dosage: 30 ML, QD, DURATION: 282 DAYS
     Route: 048
     Dates: start: 20190103, end: 20191011
  263. INNOHEP [Concomitant]
     Active Substance: TINZAPARIN SODIUM
     Indication: Product used for unknown indication
     Dosage: 10000 IU, QD (10000 IU, OD)
     Route: 058
  264. THIAMINE [Concomitant]
     Active Substance: THIAMINE
     Indication: Product used for unknown indication
     Dosage: 300 MG, DURATION: 8 DAYS
     Route: 048
     Dates: start: 20190105, end: 20190112
  265. ASPIRIN [Concomitant]
     Active Substance: ASPIRIN
     Indication: Anaemia
     Dosage: 75 MG, QD
     Route: 048
  266. ASPIRIN [Concomitant]
     Active Substance: ASPIRIN
     Indication: Anaemia
     Dosage: 75 MG, QD
     Route: 048
  267. ASPIRIN [Concomitant]
     Active Substance: ASPIRIN
     Indication: Anaemia
     Dosage: 75 ML, QD
     Route: 048
  268. ASPIRIN [Concomitant]
     Active Substance: ASPIRIN
     Indication: Anaemia
     Dosage: 75 MG, QD
     Route: 048
  269. VALACYCLOVIR HYDROCHLORIDE [Concomitant]
     Active Substance: VALACYCLOVIR HYDROCHLORIDE
     Indication: Prophylaxis
     Dosage: 500 MG, QD
     Route: 048
     Dates: start: 20190817
  270. VALACYCLOVIR HYDROCHLORIDE [Concomitant]
     Active Substance: VALACYCLOVIR HYDROCHLORIDE
     Indication: Prophylaxis
     Dosage: 500 MG, QD
     Route: 048
  271. ZOLEDRONIC ACID [Concomitant]
     Active Substance: ZOLEDRONIC ACID
     Indication: Prophylaxis
     Dosage: 4 MG, QD
     Route: 042
     Dates: start: 20181106
  272. ZOLEDRONIC ACID [Concomitant]
     Active Substance: ZOLEDRONIC ACID
     Indication: Prophylaxis
     Dosage: 4 MG, QMO
     Route: 042
     Dates: start: 20181106
  273. MAGNESIUM [Concomitant]
     Active Substance: MAGNESIUM
     Indication: Product used for unknown indication
     Dosage: 1 DOSAGE FORM (DAILY DOSE 3 TABLETS), DURATION: 8 DAYS
     Route: 048
     Dates: start: 20190105, end: 20190112
  274. CHLORHEXIDINE [Concomitant]
     Active Substance: CHLORHEXIDINE
     Indication: Tongue coated
     Dosage: 30 ML, QD (10 ML, TID (30 ML), DURATION: 35 DAYS
     Route: 048
     Dates: start: 20191116, end: 20191220
  275. BUDESONIDE [Concomitant]
     Active Substance: BUDESONIDE
     Indication: Chronic obstructive pulmonary disease
     Dosage: 1 MG, QD
     Route: 048
     Dates: start: 20200107
  276. CALCIUM ACETATE [Concomitant]
     Active Substance: CALCIUM ACETATE
     Indication: Malnutrition
     Dosage: UNK, QD, DURATION: 9 DAYS
     Route: 048
     Dates: start: 20191003, end: 20191011
  277. CALCIUM ACETATE [Concomitant]
     Active Substance: CALCIUM ACETATE
     Indication: Malnutrition
     Dosage: UNK, QD, DURATION: 9 DAYS
     Route: 048
     Dates: start: 20191029, end: 20191029
  278. CALCIUM ACETATE [Concomitant]
     Active Substance: CALCIUM ACETATE
     Indication: Malnutrition
     Dosage: UNK, BID, DURATION: 9 DAYS
     Route: 048
     Dates: start: 20191003, end: 20191011
  279. DOXYCYCLINE [Concomitant]
     Active Substance: DOXYCYCLINE\DOXYCYCLINE HYCLATE
     Indication: Product used for unknown indication
     Dosage: 400 MG, QD (200 MG BID), DURATION: 6 DAYS
     Dates: start: 20190109, end: 20190114
  280. INFLUENZA VIRUS VACCINE [Concomitant]
     Active Substance: INFLUENZA VIRUS VACCINE
     Indication: Prophylaxis
     Dosage: 1 DOSAGE FORM, QD (1 AMPULE), DURATION: 1 DAY
     Dates: start: 20191112, end: 20191112
  281. VITAMIN D NOS [Concomitant]
     Active Substance: CHOLECALCIFEROL\ERGOCALCIFEROL
     Indication: Prophylaxis
     Dosage: UNK, QD, DURATION: 28 DAYS
     Route: 048
     Dates: start: 20190102, end: 20190129
  282. VITAMIN D NOS [Concomitant]
     Active Substance: CHOLECALCIFEROL\ERGOCALCIFEROL
     Indication: Prophylaxis
     Dosage: UNK, QD, DURATION: 313 DAYS
     Dates: start: 20190103, end: 20191111
  283. VITAMIN D NOS [Concomitant]
     Active Substance: CHOLECALCIFEROL\ERGOCALCIFEROL
     Indication: Prophylaxis
     Dosage: UNK, BID, DURATION: 301 DAYS
     Route: 048
     Dates: start: 20190102, end: 20191029
  284. VITAMIN D NOS [Concomitant]
     Active Substance: CHOLECALCIFEROL\ERGOCALCIFEROL
     Indication: Prophylaxis
     Dosage: UNK, BID
     Route: 048
     Dates: start: 20190103
  285. VITAMIN D NOS [Concomitant]
     Active Substance: CHOLECALCIFEROL\ERGOCALCIFEROL
     Indication: Prophylaxis
     Dosage: 1 DOSAGE FORM, QD
     Route: 048
     Dates: start: 20190104
  286. VITAMIN D NOS [Concomitant]
     Active Substance: CHOLECALCIFEROL\ERGOCALCIFEROL
     Indication: Prophylaxis
     Dosage: UNK, BID, DURATION: 282 DAYS
     Route: 048
     Dates: start: 20190103, end: 20191011
  287. VITAMIN D NOS [Concomitant]
     Active Substance: CHOLECALCIFEROL\ERGOCALCIFEROL
     Indication: Prophylaxis
     Dosage: 1 DOSAGE FORM, QD, DURATION: 282 DAYS
     Route: 048
     Dates: start: 20190103, end: 20191011
  288. VITAMIN D NOS [Concomitant]
     Active Substance: CHOLECALCIFEROL\ERGOCALCIFEROL
     Indication: Prophylaxis
     Dosage: UNK, BID
     Route: 048
     Dates: start: 20190104
  289. VITAMIN D NOS [Concomitant]
     Active Substance: CHOLECALCIFEROL\ERGOCALCIFEROL
     Indication: Prophylaxis
     Dosage: UNK, QD
     Dates: start: 20190130, end: 20191011
  290. VITAMIN D NOS [Concomitant]
     Active Substance: CHOLECALCIFEROL\ERGOCALCIFEROL
     Indication: Prophylaxis
     Dosage: UNK, QD
     Route: 048
     Dates: start: 20190104
  291. VITAMIN D NOS [Concomitant]
     Active Substance: CHOLECALCIFEROL\ERGOCALCIFEROL
     Indication: Prophylaxis
     Dosage: UNK, QD, DURATION: 301 DAYS
     Route: 048
     Dates: start: 20190102, end: 20191029

REACTIONS (11)
  - COVID-19 [Fatal]
  - Respiratory tract infection viral [Fatal]
  - Respiratory tract infection [Fatal]
  - Respiratory tract infection bacterial [Fatal]
  - Intentional product use issue [Unknown]
  - Platelet count decreased [Fatal]
  - Thrombocytopenia [Fatal]
  - Anaemia [Recovered/Resolved]
  - Neutropenia [Recovered/Resolved]
  - Pulmonary embolism [Fatal]
  - Death [Fatal]

NARRATIVE: CASE EVENT DATE: 20181008
